FAERS Safety Report 9201402 (Version 1)
Quarter: 2013Q2

REPORT INFORMATION
  Report Type: Spontaneous
  Country: US (occurrence: US)
  Receive Date: 20130401
  Receipt Date: 20130401
  Transmission Date: 20140414
  Serious: Yes (Hospitalization)
  Sender: FDA-Public Use
  Company Number: US-ELI_LILLY_AND_COMPANY-US201303007605

PATIENT
  Sex: 0

DRUGS (4)
  1. CYMBALTA [Suspect]
     Indication: DEPRESSION
     Dosage: 30 MG, UNKNOWN
     Dates: start: 20130312
  2. COUMADIN [Concomitant]
  3. ADVIL                              /00109201/ [Concomitant]
  4. TRAMADOL [Concomitant]

REACTIONS (5)
  - Pancreatitis [Unknown]
  - Pain in extremity [Unknown]
  - Insomnia [Unknown]
  - Dry mouth [Unknown]
  - Diarrhoea [Unknown]
